FAERS Safety Report 15931540 (Version 1)
Quarter: 2019Q1

REPORT INFORMATION
  Report Type: Spontaneous
  Country: US (occurrence: US)
  Receive Date: 20190117
  Receipt Date: 20190117
  Transmission Date: 20190417
  Serious: No
  Sender: FDA-Public Use
  Company Number: None

PATIENT
  Age: 72 Year
  Sex: Female

DRUGS (1)
  1. TASIGNA [Suspect]
     Active Substance: NILOTINIB
     Route: 048
     Dates: start: 20180510

REACTIONS (6)
  - Muscle spasms [None]
  - Muscular weakness [None]
  - Headache [None]
  - Rash [None]
  - Pruritus [None]
  - Contusion [None]

NARRATIVE: CASE EVENT DATE: 20190117
